FAERS Safety Report 4790358-6 (Version None)
Quarter: 2005Q4

REPORT INFORMATION
  Report Type: 
  Country: None (occurrence: None)
  Receive Date: 20051005
  Receipt Date: 20051005
  Transmission Date: 20060501
  Serious: Yes (Life-Threatening)
  Sender: FDA-Public Use
  Company Number: None

PATIENT
  Sex: Male

DRUGS (14)
  1. HEPARIN [Suspect]
     Indication: THROMBOSIS PROPHYLAXIS
     Dosage: 800-1300 UNITS/HR IV
     Route: 042
     Dates: start: 20040728, end: 20040729
  2. AMIODARONE [Concomitant]
  3. ASPIRIN [Concomitant]
  4. ATORVASTATIN [Concomitant]
  5. BENAZEPRIL HCL [Concomitant]
  6. BISACODYL [Concomitant]
  7. FUROSEMIDE [Concomitant]
  8. MAGNESIUM SULFATE [Concomitant]
  9. METOPROLOL [Concomitant]
  10. MIDAZOLAM [Concomitant]
  11. POTASSIUM CHLORIDE [Concomitant]
  12. RANITIDINE [Concomitant]
  13. SODIUM BICARBONATE [Concomitant]
  14. TRIMETHOPRIM-SULFAMETHOXAZOLE [Concomitant]

REACTIONS (3)
  - HEPARIN-INDUCED THROMBOCYTOPENIA [None]
  - HEPATITIS A POSITIVE [None]
  - HEPATITIS B POSITIVE [None]
